FAERS Safety Report 4597368-2 (Version None)
Quarter: 2005Q1

REPORT INFORMATION
  Report Type: 
  Country: None (occurrence: None)
  Receive Date: 20050303
  Receipt Date: 20040910
  Transmission Date: 20050727
  Serious: No
  Sender: FDA-Public Use
  Company Number: US-GLAXOSMITHKLINE-A0525259A

PATIENT
  Age: 86 Year
  Sex: Female

DRUGS (7)
  1. REQUIP [Suspect]
     Indication: PARKINSON'S DISEASE
     Dosage: .25MG THREE TIMES PER DAY
     Route: 048
     Dates: start: 20040901
  2. CARBIDOPA [Concomitant]
     Route: 065
  3. FOLIC ACID [Concomitant]
  4. GLUCOSAMINE [Concomitant]
  5. CALCIUM GLUCONATE [Concomitant]
  6. DETROL LA [Concomitant]
  7. MOTRIN [Concomitant]

REACTIONS (2)
  - MYALGIA [None]
  - NAUSEA [None]
